FAERS Safety Report 25525347 (Version 1)
Quarter: 2025Q3

REPORT INFORMATION
  Report Type: Report from Study
  Country: CO (occurrence: CO)
  Receive Date: 20250707
  Receipt Date: 20250707
  Transmission Date: 20251020
  Serious: Yes (Hospitalization)
  Sender: ABBVIE
  Company Number: CO-ABBVIE-6357341

PATIENT
  Age: 46 Year
  Sex: Female

DRUGS (1)
  1. SKYRIZI [Suspect]
     Active Substance: RISANKIZUMAB-RZAA
     Indication: Psoriasis
     Route: 058
     Dates: start: 20220604, end: 20241002

REACTIONS (5)
  - Malaise [Unknown]
  - Influenza like illness [Recovering/Resolving]
  - Cough [Unknown]
  - Respiratory distress [Unknown]
  - Headache [Unknown]

NARRATIVE: CASE EVENT DATE: 20250620
